FAERS Safety Report 23672692 (Version 1)
Quarter: 2024Q1

REPORT INFORMATION
  Report Type: Report from Study
  Country: CA (occurrence: CA)
  Receive Date: 20240326
  Receipt Date: 20240326
  Transmission Date: 20240409
  Serious: Yes (Other)
  Sender: FDA-Public Use
  Company Number: CA-JNJFOC-20240310296

PATIENT
  Age: 50 Year
  Sex: Female

DRUGS (1)
  1. SIMPONI [Suspect]
     Active Substance: GOLIMUMAB
     Indication: Rheumatoid arthritis
     Route: 058
     Dates: start: 20230327

REACTIONS (4)
  - Joint swelling [Unknown]
  - Influenza like illness [Not Recovered/Not Resolved]
  - Pharyngitis streptococcal [Unknown]
  - Fatigue [Unknown]

NARRATIVE: CASE EVENT DATE: 20240228
